FAERS Safety Report 6079745-6 (Version None)
Quarter: 2009Q1

REPORT INFORMATION
  Report Type: 
  Country: None (occurrence: None)
  Receive Date: 20090211
  Receipt Date: 20090205
  Transmission Date: 20090719
  Serious: Yes (Congenital Anomaly)
  Sender: FDA-Public Use
  Company Number: GXKR2009DE01551

PATIENT

DRUGS (1)
  1. DONEURIN (NGX) (DOXEIN)  50MG [Suspect]
     Dosage: MATERNAL DOSE: 50 MG, TRANSPLACENTAL
     Route: 064

REACTIONS (3)
  - CONGENITAL HAND MALFORMATION [None]
  - MATERNAL DRUGS AFFECTING FOETUS [None]
  - POLYDACTYLY [None]
